FAERS Safety Report 8616759 (Version 2)
Quarter: 2012Q4

REPORT INFORMATION
  Report Type: 
  Country: None (occurrence: JP)
  Receive Date: 20120615
  Receipt Date: 20120831
  Transmission Date: 20130627
  Serious: Yes (Other)
  Sender: FDA-Public Use
  Company Number: JP-EISAI INC-E3810-05617-SPO-JP

PATIENT
  Age: 72 Year
  Sex: Male
  Weight: 57 kg

DRUGS (11)
  1. PARIET (RABEPRAZOLE) [Suspect]
     Indication: REFLUX OESOPHAGITIS
     Route: 048
     Dates: start: 20120410, end: 20120529
  2. PARIET (RABEPRAZOLE) [Suspect]
     Indication: PROPHYLAXIS AGAINST GASTROINTESTINAL ULCER
  3. PRAZAXA [Suspect]
     Indication: PROPHYLAXIS
     Route: 048
     Dates: start: 20120410, end: 20120529
  4. PRAZAXA [Suspect]
     Indication: CHRONIC ATRIAL FIBRILLATION
  5. LANIRAPID [Concomitant]
     Indication: CHRONIC ATRIAL FIBRILLATION
     Route: 048
     Dates: start: 199401, end: 20120529
  6. PURSENNID [Concomitant]
     Indication: CONSTIPATION
     Route: 048
     Dates: start: 2002
  7. FUROSEMIDE [Concomitant]
     Indication: CHRONIC ATRIAL FIBRILLATION
     Route: 048
     Dates: start: 20110909, end: 20120618
  8. MUCODYNE [Concomitant]
     Indication: CHRONIC BRONCHITIS
     Route: 048
     Dates: start: 20111101
  9. KLARICID [Concomitant]
     Indication: CHRONIC BRONCHITIS
     Route: 048
     Dates: start: 20111101
  10. URIEF [Concomitant]
     Indication: NEUROGENIC BLADDER
     Route: 048
     Dates: start: 201107
  11. BESACOLIN [Concomitant]
     Indication: NEUROGENIC BLADDER
     Route: 048
     Dates: start: 20111011

REACTIONS (1)
  - Non-alcoholic steatohepatitis [Recovered/Resolved]
